FAERS Safety Report 10178814 (Version 1)
Quarter: 2014Q2

REPORT INFORMATION
  Report Type: Spontaneous
  Country: US (occurrence: None)
  Receive Date: 20140516
  Receipt Date: 20140516
  Transmission Date: 20141212
  Serious: Yes (Other)
  Sender: FDA-Public Use
  Company Number: None

PATIENT
  Age: 71 Year
  Sex: Female
  Weight: 86.18 kg

DRUGS (10)
  1. ONGLYZA [Suspect]
     Indication: TYPE 2 DIABETES MELLITUS
     Dosage: 5 MG, 1 PER DAY, AM, BY MOUTH
     Route: 048
     Dates: end: 20140330
  2. METROPOLOL [Concomitant]
  3. DIGOXIN [Concomitant]
  4. COUMADIN [Concomitant]
  5. LESCOL [Concomitant]
  6. ZETIA [Concomitant]
  7. LOSARTAN [Concomitant]
  8. VITAMIN D [Concomitant]
  9. CENTRUM DAILY [Concomitant]
  10. CALCIUM + VITAMIN D [Concomitant]

REACTIONS (7)
  - Peripheral swelling [None]
  - Peripheral swelling [None]
  - Peripheral swelling [None]
  - Foot fracture [None]
  - Ankle fracture [None]
  - Oedema [None]
  - Joint swelling [None]
